FAERS Safety Report 6730568-1 (Version None)
Quarter: 2010Q2

REPORT INFORMATION
  Report Type: 
  Country: None (occurrence: None)
  Receive Date: 20100514
  Receipt Date: 20100503
  Transmission Date: 20101027
  Serious: Yes (Other)
  Sender: FDA-Public Use
  Company Number: 2007US001564

PATIENT
  Age: 65 Year
  Sex: Male

DRUGS (1)
  1. PROTOPIC [Suspect]
     Indication: SEBORRHOEIC DERMATITIS
     Dosage: TOPICAL
     Route: 061

REACTIONS (2)
  - LYMPHADENOPATHY [None]
  - SARCOMA [None]
